FAERS Safety Report 13466798 (Version 1)
Quarter: 2017Q2

REPORT INFORMATION
  Report Type: Spontaneous
  Country: US (occurrence: US)
  Receive Date: 20170420
  Receipt Date: 20170420
  Transmission Date: 20170830
  Serious: No
  Sender: FDA-Public Use
  Company Number: None

PATIENT
  Age: 56 Year
  Sex: Female

DRUGS (1)
  1. AFINITOR [Suspect]
     Active Substance: EVEROLIMUS
     Indication: BREAST CANCER FEMALE
     Dosage: 10MG ONCE A DAY BY
     Dates: start: 20170128

REACTIONS (2)
  - Bronchitis [None]
  - Sinusitis [None]

NARRATIVE: CASE EVENT DATE: 20160224
